FAERS Safety Report 5213215-X (Version None)
Quarter: 2007Q1

REPORT INFORMATION
  Report Type: 
  Country: None (occurrence: None)
  Receive Date: 20070118
  Receipt Date: 20070118
  Transmission Date: 20070707
  Serious: Yes (Other)
  Sender: FDA-Public Use
  Company Number: None

PATIENT
  Sex: Female

DRUGS (2)
  1. MEDROXYPROGESTERONE [Suspect]
     Indication: CONTRACEPTION
     Dosage: 150MG EVERY THREE MONTHS IM
     Route: 030
     Dates: start: 20050126, end: 20061228
  2. MEDROXYPROGESTERONE [Suspect]
     Indication: CONTRACEPTION
     Dosage: 150MG EVERY THREE MONTHS IM
     Route: 030
     Dates: start: 20061005, end: 20061228

REACTIONS (1)
  - UNINTENDED PREGNANCY [None]
